FAERS Safety Report 10719062 (Version 3)
Quarter: 2024Q2

REPORT INFORMATION
  Report Type: Spontaneous
  Country: DE (occurrence: DE)
  Receive Date: 20150119
  Receipt Date: 20240429
  Transmission Date: 20240716
  Serious: Yes (Other)
  Sender: FDA-Public Use
  Company Number: DE-ACCORD-028128

PATIENT
  Age: 69 Year
  Sex: Female

DRUGS (4)
  1. FLUOROURACIL [Suspect]
     Active Substance: FLUOROURACIL
     Indication: Pancreatic carcinoma metastatic
     Dosage: CHEMOTHERAPY DOSE IN A FIRST STEP TO 75% OF STANDARD DOSE
     Dates: start: 201102, end: 201211
  2. IRINOTECAN HYDROCHLORIDE [Suspect]
     Active Substance: IRINOTECAN HYDROCHLORIDE
     Indication: Pancreatic carcinoma metastatic
     Dosage: CHEMOTHERAPY DOSE IN A FIRST STEP TO 75% OF STANDARD DOSE
     Dates: start: 201102
  3. OXALIPLATIN [Suspect]
     Active Substance: OXALIPLATIN
     Indication: Pancreatic carcinoma metastatic
     Dosage: CHEMOTHERAPY DOSE IN A FIRST STEP TO 75% OF STANDARD DOSE
     Dates: start: 201102
  4. LEUCOVORIN [Suspect]
     Active Substance: LEUCOVORIN\LEUCOVORIN CALCIUM
     Indication: Pancreatic carcinoma metastatic
     Dosage: CHEMOTHERAPY DOSE IN A FIRST STEP TO 75% OF STANDARD DOSE
     Dates: start: 201102

REACTIONS (6)
  - Polyneuropathy [Unknown]
  - Mucosal inflammation [Unknown]
  - Neutropenia [Unknown]
  - Thrombocytopenia [Unknown]
  - Leukopenia [Unknown]
  - Off label use [Unknown]
